FAERS Safety Report 7245237-1 (Version None)
Quarter: 2011Q1

REPORT INFORMATION
  Report Type: 
  Country: None (occurrence: None)
  Receive Date: 20110126
  Receipt Date: 20110120
  Transmission Date: 20110831
  Serious: Yes (Hospitalization)
  Sender: FDA-Public Use
  Company Number: FR-BRISTOL-MYERS SQUIBB COMPANY-12264396

PATIENT
  Age: 47 Year
  Sex: Male

DRUGS (8)
  1. CLOPIDOGREL BISULFATE [Suspect]
     Route: 048
  2. NEUPOGEN [Suspect]
     Route: 058
     Dates: start: 20011214, end: 20020903
  3. INTERFERON [Suspect]
     Dates: start: 20010921, end: 20020903
  4. PRAVASTATIN SODIUM [Suspect]
  5. ACETYLSALICYLIC ACID SRT [Suspect]
     Route: 048
  6. RIBAVIRIN [Suspect]
     Route: 048
     Dates: start: 20010924, end: 20020903
  7. GLICLAZIDE [Suspect]
     Route: 048
  8. OMEPRAZOLE [Suspect]

REACTIONS (2)
  - CORONARY ARTERY STENOSIS [None]
  - ANGINA PECTORIS [None]
